FAERS Safety Report 20123733 (Version 6)
Quarter: 2022Q3

REPORT INFORMATION
  Report Type: Spontaneous
  Country: CA (occurrence: CA)
  Receive Date: 20211129
  Receipt Date: 20220910
  Transmission Date: 20221027
  Serious: Yes (Other)
  Sender: FDA-Public Use
  Company Number: CA-CELLTRION INC.-2021CA012304

PATIENT

DRUGS (10)
  1. INFLECTRA [Suspect]
     Active Substance: INFLIXIMAB-DYYB
     Indication: Rheumatoid arthritis
     Dosage: 200 MG, 0, 2 AND 6 WEEKS, THEN EVERY 8 WEEKS
     Route: 041
     Dates: start: 20210308
  2. INFLECTRA [Suspect]
     Active Substance: INFLIXIMAB-DYYB
     Dosage: 200 MG, 0, 2 AND 6 WEEKS, THEN EVERY 8 WEEKS
     Route: 041
     Dates: start: 20210420
  3. INFLECTRA [Suspect]
     Active Substance: INFLIXIMAB-DYYB
     Dosage: 200 MG, 0, 2 AND 6 WEEKS, THEN EVERY 8 WEEKS
     Route: 041
     Dates: start: 20210614
  4. INFLECTRA [Suspect]
     Active Substance: INFLIXIMAB-DYYB
     Dosage: 200 MG, 0, 2 AND 6 WEEKS, THEN EVERY 8 WEEKS
     Route: 041
     Dates: start: 20210827
  5. INFLECTRA [Suspect]
     Active Substance: INFLIXIMAB-DYYB
     Dosage: 200 MG, 0, 2 AND 6 WEEKS, THEN EVERY 8 WEEKS
     Route: 041
     Dates: start: 20211118
  6. INFLECTRA [Suspect]
     Active Substance: INFLIXIMAB-DYYB
     Dosage: 200 MG, 0, 2 AND 6 WEEKS, THEN EVERY 8 WEEKS
     Route: 041
     Dates: start: 20220228
  7. INFLECTRA [Suspect]
     Active Substance: INFLIXIMAB-DYYB
     Dosage: 144 MG (RECEIVED A DOSE OF 144 MG INSTEAD OF 200 MG AS PER PRESCRIPTION)
     Route: 041
     Dates: start: 20220621
  8. INFLECTRA [Suspect]
     Active Substance: INFLIXIMAB-DYYB
     Dosage: 200 MG ,Q 0, 2 AND 6 WEEKS, THEN EVERY 8 WEEKS
     Route: 041
     Dates: start: 20220830
  9. METHOTREXATE [Concomitant]
     Active Substance: METHOTREXATE
     Indication: Rheumatoid arthritis
     Dosage: 1 DF ,DOSAGE INFORMATION NOT AVAILABLE
     Route: 065
  10. PREDNISONE [Concomitant]
     Active Substance: PREDNISONE
     Dosage: UNK

REACTIONS (5)
  - Rheumatoid arthritis [Unknown]
  - COVID-19 [Unknown]
  - Off label use [Unknown]
  - Inappropriate schedule of product administration [Unknown]
  - Incorrect dose administered [Unknown]

NARRATIVE: CASE EVENT DATE: 20210101
